FAERS Safety Report 21199956 (Version 3)
Quarter: 2024Q3

REPORT INFORMATION
  Report Type: Report from Study
  Country: CD (occurrence: CD)
  Receive Date: 20220811
  Receipt Date: 20240705
  Transmission Date: 20241016
  Serious: Yes (Death, Other)
  Sender: SANOFI AVENTIS
  Company Number: CD-SA-SAC20220811000144

PATIENT
  Age: 52 Year
  Weight: 38 kg

DRUGS (1)
  1. FEXINIDAZOLE [Suspect]
     Active Substance: FEXINIDAZOLE
     Dosage: UNK
     Dates: start: 20210121, end: 20210130

REACTIONS (4)
  - Pyrexia [Fatal]
  - Headache [Fatal]
  - Chills [Fatal]
  - Seizure [Unknown]

NARRATIVE: CASE EVENT DATE: 20210123
